FAERS Safety Report 5246752-2 (Version None)
Quarter: 2007Q1

REPORT INFORMATION
  Report Type: 
  Country: None (occurrence: None)
  Receive Date: 20070220
  Receipt Date: 20070205
  Transmission Date: 20070707
  Serious: Yes (Other)
  Sender: FDA-Public Use
  Company Number: 2006PV026094

PATIENT
  Age: 61 Year
  Sex: Female
  Weight: 171.0061 kg

DRUGS (7)
  1. BYETTA [Suspect]
     Indication: DIABETES MELLITUS NON-INSULIN-DEPENDENT
     Dosage: SEE IMAGE
     Route: 058
     Dates: start: 20060628, end: 20060727
  2. BYETTA [Suspect]
     Indication: DIABETES MELLITUS NON-INSULIN-DEPENDENT
     Dosage: SEE IMAGE
     Route: 058
     Dates: start: 20060727, end: 20060914
  3. BYETTA [Suspect]
     Indication: DIABETES MELLITUS NON-INSULIN-DEPENDENT
     Dosage: SEE IMAGE
     Route: 058
     Dates: start: 20060914, end: 20061125
  4. NORVASC [Concomitant]
  5. ZOCOR [Concomitant]
  6. GLUCOPHAGE [Concomitant]
  7. AVANDIA [Concomitant]

REACTIONS (4)
  - ANAPHYLACTIC SHOCK [None]
  - NO THERAPEUTIC RESPONSE [None]
  - SELF-MEDICATION [None]
  - WEIGHT DECREASED [None]
